FAERS Safety Report 5542442-7 (Version None)
Quarter: 2007Q4

REPORT INFORMATION
  Report Type: 
  Country: None (occurrence: None)
  Receive Date: 20071210
  Receipt Date: 20071128
  Transmission Date: 20080405
  Serious: Yes (Hospitalization)
  Sender: FDA-Public Use
  Company Number: AU-GENENTECH-252299

PATIENT
  Sex: Male
  Weight: 76.7 kg

DRUGS (12)
  1. BLINDED BEVACIZUMAB [Suspect]
     Indication: B-CELL LYMPHOMA
     Dosage: 815 MG, Q2W
     Route: 042
     Dates: start: 20070918
  2. CYCLOPHOSPHAMIDE [Suspect]
     Indication: B-CELL LYMPHOMA
     Dosage: 815 MG, Q2W
     Route: 042
     Dates: start: 20070918
  3. DOXORUBICIN HCL [Suspect]
     Indication: B-CELL LYMPHOMA
     Dosage: 815 MG, Q2W
     Route: 042
     Dates: start: 20070918
  4. BLINDED PLACEBO [Suspect]
     Indication: B-CELL LYMPHOMA
     Dosage: 815 MG, Q2W
     Route: 042
     Dates: start: 20070918
  5. PREDNISONE [Suspect]
     Indication: B-CELL LYMPHOMA
     Dosage: 815 MG, Q2W
     Route: 042
     Dates: start: 20070918
  6. BLINDED RITUXIMAB [Suspect]
     Indication: B-CELL LYMPHOMA
     Dosage: 815 MG, Q2W
     Route: 042
     Dates: start: 20070918
  7. VINCRISTINE [Suspect]
     Indication: B-CELL LYMPHOMA
     Dosage: 815 MG, Q2W
     Route: 042
     Dates: start: 20070918
  8. RITUXIMAB [Suspect]
     Indication: B-CELL LYMPHOMA
     Dosage: 727.5 MG, Q2W
     Route: 042
     Dates: start: 20070919
  9. CYCLOPHOSPHAMIDE [Suspect]
     Indication: B-CELL LYMPHOMA
     Dosage: 1455 MG, Q2W
     Dates: start: 20070918
  10. DOXORUBICIN HCL [Suspect]
     Indication: B-CELL LYMPHOMA
     Dosage: 97 MG, Q2W
     Route: 042
     Dates: start: 20070918
  11. VINCRISTINE [Suspect]
     Indication: B-CELL LYMPHOMA
     Dosage: 2 MG, Q2W
     Route: 042
     Dates: start: 20070918
  12. PREDNISOLONE [Suspect]
     Indication: B-CELL LYMPHOMA
     Dosage: 500 MG, 5/WEEK
     Route: 048
     Dates: start: 20070918

REACTIONS (2)
  - FEBRILE NEUTROPENIA [None]
  - MOUTH ULCERATION [None]
